FAERS Safety Report 5604888-8 (Version None)
Quarter: 2008Q1

REPORT INFORMATION
  Report Type: 
  Country: None (occurrence: None)
  Receive Date: 20080128
  Receipt Date: 20080117
  Transmission Date: 20080703
  Serious: No
  Sender: FDA-Public Use
  Company Number: US-BAXTER-2008BH000520

PATIENT
  Sex: Male

DRUGS (1)
  1. ARALAST [Suspect]
     Indication: DRUG USE FOR UNKNOWN INDICATION
     Dosage: DOSE UNIT:UNKNOWN
     Route: 042
     Dates: start: 20030101

REACTIONS (1)
  - HEPATITIS C [None]
